FAERS Safety Report 6870861-5 (Version None)
Quarter: 2010Q3

REPORT INFORMATION
  Report Type: 
  Country: None (occurrence: None)
  Receive Date: 20100723
  Receipt Date: 20100712
  Transmission Date: 20110219
  Serious: Yes (Other)
  Sender: FDA-Public Use
  Company Number: PHHY2010US45373

PATIENT
  Sex: Female

DRUGS (2)
  1. EXFORGE [Suspect]
     Indication: BLOOD PRESSURE
     Dosage: UNK
     Route: 048
  2. LISINOPRIL [Suspect]
     Dosage: 60 MG, UNK
     Route: 048

REACTIONS (1)
  - BLOOD PRESSURE INCREASED [None]
